FAERS Safety Report 9070956 (Version 1)
Quarter: 2013Q1

REPORT INFORMATION
  Report Type: Spontaneous
  Country: FR (occurrence: FR)
  Receive Date: 20130129
  Receipt Date: 20130129
  Transmission Date: 20140127
  Serious: Yes (Hospitalization, Disabling)
  Sender: FDA-Public Use
  Company Number: FR-VIIV HEALTHCARE LIMITED-B0858865B

PATIENT
  Age: 0 None
  Sex: 0

DRUGS (5)
  1. RETROVIR [Suspect]
     Indication: ANTIVIRAL PROPHYLAXIS
     Dosage: 4MGK TWICE PER DAY
     Route: 048
     Dates: end: 20070620
  2. RETROVIR [Suspect]
     Indication: ANTIVIRAL PROPHYLAXIS
     Route: 064
     Dates: start: 20070522, end: 20070522
  3. EPIVIR [Suspect]
     Indication: HIV INFECTION
     Route: 064
     Dates: start: 20070326, end: 20070522
  4. VIDEX [Suspect]
     Indication: HIV INFECTION
     Route: 064
     Dates: start: 20070326, end: 20070522
  5. LOPINAVIR [Suspect]
     Indication: HIV INFECTION
     Route: 064
     Dates: start: 20070326, end: 20070522

REACTIONS (6)
  - Foetal distress syndrome [Recovered/Resolved]
  - Neonatal respiratory distress syndrome [Recovered/Resolved]
  - Developmental delay [Not Recovered/Not Resolved]
  - Abnormal behaviour [Not Recovered/Not Resolved]
  - Speech disorder developmental [Recovering/Resolving]
  - Foetal exposure during pregnancy [Unknown]
